FAERS Safety Report 19145266 (Version 1)
Quarter: 2021Q2

REPORT INFORMATION
  Report Type: Spontaneous
  Country: GB (occurrence: GB)
  Receive Date: 20210416
  Receipt Date: 20210416
  Transmission Date: 20210717
  Serious: Yes (Hospitalization)
  Sender: FDA-Public Use
  Company Number: GB-MYLANLABS-2021M1021907

PATIENT
  Age: 40 Year
  Sex: Male

DRUGS (3)
  1. CAPECITABINE. [Suspect]
     Active Substance: CAPECITABINE
     Indication: ADENOCARCINOMA OF COLON
     Dosage: 20 GRAM CUMULATIVE DOSE
     Route: 048
  2. METOPROLOL. [Suspect]
     Active Substance: METOPROLOL
     Indication: DRUG THERAPY
     Dosage: 30 MILLIGRAM
     Route: 040
  3. OXALIPLATIN. [Suspect]
     Active Substance: OXALIPLATIN
     Indication: ADENOCARCINOMA OF COLON
     Dosage: 250 MILLIGRAM FORMULATION: INFUSION
     Route: 065

REACTIONS (4)
  - Left ventricular dysfunction [Recovering/Resolving]
  - Hypotension [Unknown]
  - Arteriospasm coronary [Recovering/Resolving]
  - Toxic leukoencephalopathy [Recovering/Resolving]
